FAERS Safety Report 16476352 (Version 1)
Quarter: 2019Q2

REPORT INFORMATION
  Report Type: Spontaneous
  Country: NL (occurrence: NL)
  Receive Date: 20190626
  Receipt Date: 20190626
  Transmission Date: 20190711
  Serious: Yes (Other)
  Sender: FDA-Public Use
  Company Number: PHHY2019NL139186

PATIENT
  Age: 66 Year
  Sex: Male
  Weight: 168 kg

DRUGS (5)
  1. PREDNISONE. [Suspect]
     Active Substance: PREDNISONE
     Indication: PRODUCT USED FOR UNKNOWN INDICATION
     Dosage: UNK (SHORT COURSE)
     Route: 065
  2. MOMETASONE [Suspect]
     Active Substance: MOMETASONE
     Indication: ECZEMA
     Dosage: UNK
     Route: 065
  3. CLOBETASONE BUTYRATE [Suspect]
     Active Substance: CLOBETASONE BUTYRATE
     Indication: PRODUCT USED FOR UNKNOWN INDICATION
     Dosage: UNK
     Route: 065
  4. DESOXIMETASONE. [Suspect]
     Active Substance: DESOXIMETASONE
     Indication: PRODUCT USED FOR UNKNOWN INDICATION
     Dosage: UNK
     Route: 065
  5. TRIAMCINOLONE [Suspect]
     Active Substance: TRIAMCINOLONE
     Indication: PRODUCT USED FOR UNKNOWN INDICATION
     Route: 065

REACTIONS (10)
  - Late onset hypogonadism syndrome [Recovering/Resolving]
  - Libido decreased [Recovering/Resolving]
  - Oedema peripheral [Recovering/Resolving]
  - Skin striae [Recovering/Resolving]
  - Hypothyroidism [Recovering/Resolving]
  - Mood swings [Recovering/Resolving]
  - Central obesity [Recovering/Resolving]
  - Obesity [Recovering/Resolving]
  - Cushing^s syndrome [Recovering/Resolving]
  - Haematoma [Recovering/Resolving]
